FAERS Safety Report 9935538 (Version 2)
Quarter: 2014Q1

REPORT INFORMATION
  Report Type: Report from Study
  Country: AU (occurrence: AU)
  Receive Date: 20140228
  Receipt Date: 20140228
  Transmission Date: 20141002
  Serious: Yes (Death, Other)
  Sender: FDA-Public Use
  Company Number: PHHY2013AU110800

PATIENT
  Age: 54 Year
  Sex: Female

DRUGS (2)
  1. AFINITOR [Suspect]
     Indication: BREAST CANCER METASTATIC
     Dosage: 10 MG, DAILY
     Route: 048
     Dates: start: 20130806
  2. AFINITOR [Suspect]
     Dosage: 5 MG, DAILY
     Route: 048

REACTIONS (4)
  - Death [Fatal]
  - Pulmonary toxicity [Recovering/Resolving]
  - Pneumonitis [Recovering/Resolving]
  - Dyspnoea [Recovering/Resolving]
